FAERS Safety Report 7178863-9 (Version None)
Quarter: 2010Q4

REPORT INFORMATION
  Report Type: 
  Country: None (occurrence: None)
  Receive Date: 20101221
  Receipt Date: 20101207
  Transmission Date: 20110411
  Serious: Yes (Other)
  Sender: FDA-Public Use
  Company Number: US-JNJFOC-20101206356

PATIENT
  Sex: Female

DRUGS (2)
  1. DOXORUBICIN HCL [Suspect]
     Indication: ENDOMETRIAL CANCER
     Route: 042
  2. CARBOPLATIN [Suspect]
     Indication: ENDOMETRIAL CANCER
     Route: 065

REACTIONS (1)
  - MENTAL STATUS CHANGES [None]
